FAERS Safety Report 6068962-7 (Version None)
Quarter: 2009Q1

REPORT INFORMATION
  Report Type: 
  Country: None (occurrence: None)
  Receive Date: 20090206
  Receipt Date: 20090130
  Transmission Date: 20090719
  Serious: Yes (Hospitalization)
  Sender: FDA-Public Use
  Company Number: PHHO2009GB01700

PATIENT
  Sex: Male
  Weight: 1.73 kg

DRUGS (5)
  1. ZOLEDRONIC ACID [Suspect]
     Dosage: 4MG EVERY 3 WKS
     Route: 042
     Dates: start: 20090121
  2. DOCETAXEL [Suspect]
     Dosage: UNK
  3. PREDNISOLONE [Concomitant]
  4. CALCIUM [Concomitant]
  5. VITAMIN D [Concomitant]

REACTIONS (4)
  - BLOOD CALCIUM DECREASED [None]
  - DIARRHOEA [None]
  - FEBRILE NEUTROPENIA [None]
  - VOMITING [None]
